FAERS Safety Report 4710460-4 (Version None)
Quarter: 2005Q3

REPORT INFORMATION
  Report Type: 
  Country: None (occurrence: None)
  Receive Date: 20050711
  Receipt Date: 20050627
  Transmission Date: 20060218
  Serious: Yes (Other)
  Sender: FDA-Public Use
  Company Number: DE-JNJFOC-20050607218

PATIENT
  Sex: Male

DRUGS (1)
  1. RISPERDAL CONSTA [Suspect]
     Indication: SCHIZOPHRENIA
     Dosage: SINCE 1.5 YRS
     Route: 030

REACTIONS (4)
  - DYSPNOEA [None]
  - EXCITABILITY [None]
  - HYPERTENSION [None]
  - HYPERVENTILATION [None]
